FAERS Safety Report 5978930-9 (Version None)
Quarter: 2008Q4

REPORT INFORMATION
  Report Type: 
  Country: None (occurrence: None)
  Receive Date: 20081204
  Receipt Date: 20071128
  Transmission Date: 20090506
  Serious: No
  Sender: FDA-Public Use
  Company Number: US-ABBOTT-07P-163-0426628-00

PATIENT
  Sex: Male
  Weight: 67.646 kg

DRUGS (4)
  1. TRICOR [Suspect]
     Indication: BLOOD TRIGLYCERIDES INCREASED
     Route: 048
     Dates: start: 20020101
  2. TRICOR [Suspect]
     Route: 048
     Dates: end: 20071127
  3. TRICOR [Suspect]
     Route: 048
     Dates: start: 20071127
  4. LISINOPRIL [Concomitant]
     Indication: BLOOD PRESSURE MANAGEMENT
     Route: 048
     Dates: start: 20010101

REACTIONS (1)
  - SENSATION OF HEAVINESS [None]
